FAERS Safety Report 5870616-4 (Version None)
Quarter: 2008Q3

REPORT INFORMATION
  Report Type: 
  Country: None (occurrence: None)
  Receive Date: 20080904
  Receipt Date: 20080829
  Transmission Date: 20090109
  Serious: Yes (Hospitalization)
  Sender: FDA-Public Use
  Company Number: B0534408A

PATIENT
  Age: 54 Year
  Sex: Female

DRUGS (8)
  1. AUGMENTIN '125' [Suspect]
     Indication: ANTIBIOTIC THERAPY
     Route: 048
     Dates: start: 20060624, end: 20060630
  2. OFLOCET [Suspect]
     Indication: ANTIBIOTIC THERAPY
     Route: 048
     Dates: start: 20060624, end: 20060630
  3. PREVISCAN [Concomitant]
     Indication: PERIPHERAL VASCULAR DISORDER
     Route: 048
     Dates: start: 20060624
  4. NORSET [Concomitant]
     Indication: DRUG USE FOR UNKNOWN INDICATION
     Route: 048
  5. LEVOTHYROX [Concomitant]
     Indication: HYPOTHYROIDISM
     Route: 048
  6. MOPRAL [Concomitant]
     Indication: DRUG USE FOR UNKNOWN INDICATION
     Route: 048
  7. DOXORUBICIN HCL [Concomitant]
     Route: 065
  8. INNOHEP [Concomitant]
     Indication: DEEP VEIN THROMBOSIS
     Route: 065
     Dates: start: 20060613, end: 20060601

REACTIONS (6)
  - CHOLESTASIS [None]
  - DIARRHOEA [None]
  - HEPATIC STEATOSIS [None]
  - HEPATOCELLULAR INJURY [None]
  - LYMPHADENOPATHY [None]
  - PULMONARY EMBOLISM [None]
